FAERS Safety Report 7362352-2 (Version None)
Quarter: 2011Q1

REPORT INFORMATION
  Report Type: 
  Country: None (occurrence: None)
  Receive Date: 20110318
  Receipt Date: 20110307
  Transmission Date: 20110831
  Serious: Yes (Other)
  Sender: FDA-Public Use
  Company Number: AU-TYCO HEALTHCARE/MALLINCKRODT-T201100581

PATIENT
  Sex: Female
  Weight: 58 kg

DRUGS (2)
  1. EXALGO [Suspect]
     Indication: BACK PAIN
     Dosage: 16 MG, UNK
     Route: 048
     Dates: start: 20091022, end: 20100223
  2. EXALGO [Suspect]
     Dosage: 8 MG, UNK
     Route: 048
     Dates: start: 20091022, end: 20100223

REACTIONS (2)
  - DRUG PRESCRIBING ERROR [None]
  - ASTHMA [None]
